FAERS Safety Report 5479697-3 (Version None)
Quarter: 2007Q4

REPORT INFORMATION
  Report Type: 
  Country: None (occurrence: None)
  Receive Date: 20071008
  Receipt Date: 20070926
  Transmission Date: 20080405
  Serious: Yes (Life-Threatening, Other)
  Sender: FDA-Public Use
  Company Number: US-AVENTIS-200714178EU

PATIENT
  Age: 67 Year
  Sex: Female

DRUGS (3)
  1. ENOXAPARIN SODIUM [Suspect]
     Route: 058
     Dates: start: 20070823, end: 20070823
  2. SIMVASTATIN [Concomitant]
     Route: 048
     Dates: start: 20030701
  3. LORATADINE [Concomitant]
     Route: 048
     Dates: start: 20041001

REACTIONS (3)
  - CARDIAC ARREST [None]
  - GASTRIC HAEMORRHAGE [None]
  - PULMONARY EMBOLISM [None]
